FAERS Safety Report 19250124 (Version 3)
Quarter: 2021Q4

REPORT INFORMATION
  Report Type: Spontaneous
  Country: BR (occurrence: BR)
  Receive Date: 20210512
  Receipt Date: 20211121
  Transmission Date: 20220304
  Serious: Yes (Other)
  Sender: FDA-Public Use
  Company Number: BR-009507513-2105BRA002272

PATIENT
  Age: 58 Year
  Sex: Male
  Weight: 83 kg

DRUGS (4)
  1. JANUVIA [Suspect]
     Active Substance: SITAGLIPTIN PHOSPHATE
     Indication: Type 2 diabetes mellitus
     Dosage: 1 TABLET, QD
     Route: 048
     Dates: start: 2018
  2. HYALURONATE SODIUM [Suspect]
     Active Substance: HYALURONATE SODIUM
     Indication: Blepharitis
     Dosage: 4/4 EYE DROP
     Dates: start: 2021
  3. RIVOTRIL [Concomitant]
     Active Substance: CLONAZEPAM
     Dosage: 5 DROPS
     Dates: start: 2020
  4. ROSUVASTATIN [Concomitant]
     Active Substance: ROSUVASTATIN
     Dosage: 10 MILLIGRAM, HS

REACTIONS (19)
  - Facial paralysis [Unknown]
  - Speech disorder [Unknown]
  - Bacterial infection [Unknown]
  - Blood test abnormal [Unknown]
  - Pollakiuria [Unknown]
  - Emotional disorder [Unknown]
  - Eyelid function disorder [Recovering/Resolving]
  - Oral disorder [Recovering/Resolving]
  - Facial paresis [Recovering/Resolving]
  - Facial pain [Unknown]
  - Glycosylated haemoglobin decreased [Unknown]
  - Self-induced vomiting [Unknown]
  - Conjunctivitis [Unknown]
  - Stress [Unknown]
  - Viral infection [Unknown]
  - Cold sweat [Unknown]
  - Feeling abnormal [Unknown]
  - Sensory disturbance [Unknown]
  - Accidental overdose [Unknown]

NARRATIVE: CASE EVENT DATE: 20210101
